FAERS Safety Report 20773400 (Version 2)
Quarter: 2022Q2

REPORT INFORMATION
  Report Type: Spontaneous
  Country: JP (occurrence: JP)
  Receive Date: 20220502
  Receipt Date: 20220527
  Transmission Date: 20220721
  Serious: Yes (Hospitalization)
  Sender: FDA-Public Use
  Company Number: JP-ELI_LILLY_AND_COMPANY-JP202204010619

PATIENT
  Age: 71 Year
  Sex: Female

DRUGS (5)
  1. TRULICITY [Suspect]
     Active Substance: DULAGLUTIDE
     Indication: Diabetes mellitus
     Dosage: 0.75 MG
     Route: 058
     Dates: start: 2020
  2. IMEGLIMIN [Suspect]
     Active Substance: IMEGLIMIN
     Indication: Diabetes mellitus
     Dosage: 2000 MG, DAILY
     Route: 065
     Dates: start: 20220204, end: 20220416
  3. ASPIRIN [Concomitant]
     Active Substance: ASPIRIN
  4. UNISIA [Concomitant]
     Active Substance: AMLODIPINE BESYLATE\CANDESARTAN CILEXETIL
  5. BISOPROLOL [Concomitant]
     Active Substance: BISOPROLOL

REACTIONS (1)
  - Cerebellar infarction [Unknown]

NARRATIVE: CASE EVENT DATE: 20220416
